FAERS Safety Report 10989480 (Version 1)
Quarter: 2015Q2

REPORT INFORMATION
  Report Type: Report from Study
  Country: US (occurrence: US)
  Receive Date: 20150406
  Receipt Date: 20150406
  Transmission Date: 20150821
  Serious: No
  Sender: FDA-Public Use
  Company Number: US-AMGEN-USASL2015030616

PATIENT
  Age: 47 Year
  Sex: Male

DRUGS (1)
  1. ENBREL [Suspect]
     Active Substance: ETANERCEPT
     Indication: PSORIASIS
     Dosage: UNK UNK, UNK
     Route: 065
     Dates: start: 20140509

REACTIONS (4)
  - Diarrhoea [Recovered/Resolved]
  - Respiratory disorder [Recovered/Resolved]
  - Influenza [Recovered/Resolved]
  - Limb discomfort [Not Recovered/Not Resolved]
